FAERS Safety Report 18891035 (Version 2)
Quarter: 2025Q1

REPORT INFORMATION
  Report Type: Spontaneous
  Country: IT (occurrence: IT)
  Receive Date: 20210215
  Receipt Date: 20250118
  Transmission Date: 20250409
  Serious: Yes (Other)
  Sender: AUROBINDO
  Company Number: IT-JNJFOC-20210141994

PATIENT
  Age: 25 Year
  Sex: Male

DRUGS (8)
  1. BISOPROLOL FUMARATE\HYDROCHLOROTHIAZIDE [Suspect]
     Active Substance: BISOPROLOL FUMARATE\HYDROCHLOROTHIAZIDE
     Indication: Product used for unknown indication
     Route: 048
  2. METFORMIN HYDROCHLORIDE [Suspect]
     Active Substance: METFORMIN HYDROCHLORIDE
     Indication: Intentional self-injury
     Route: 048
     Dates: start: 20210124, end: 20210124
  3. RAMIPRIL [Suspect]
     Active Substance: RAMIPRIL
     Indication: Intentional self-injury
     Route: 048
     Dates: start: 20210124
  4. VALSARTAN AND HYDROCHLOROTHIAZIDE [Suspect]
     Active Substance: HYDROCHLOROTHIAZIDE\VALSARTAN
     Indication: Intentional self-injury
     Route: 065
     Dates: start: 20210124
  5. HALOPERIDOL [Suspect]
     Active Substance: HALOPERIDOL
     Indication: Intentional self-injury
     Route: 030
     Dates: start: 20210124, end: 20210124
  6. HALOPERIDOL [Suspect]
     Active Substance: HALOPERIDOL
     Route: 048
     Dates: start: 20210124, end: 20210124
  7. FERROUS SULFATE [Suspect]
     Active Substance: FERROUS SULFATE
     Indication: Intentional self-injury
     Route: 048
     Dates: start: 20210124
  8. VALIUM [Suspect]
     Active Substance: DIAZEPAM
     Indication: Intentional self-injury
     Route: 048
     Dates: start: 20210124

REACTIONS (5)
  - Intentional self-injury [Unknown]
  - Intentional product misuse [Unknown]
  - Self-destructive behaviour [Unknown]
  - Drug abuse [Unknown]
  - No adverse event [Unknown]

NARRATIVE: CASE EVENT DATE: 20210124
